FAERS Safety Report 4908431-8 (Version None)
Quarter: 2006Q1

REPORT INFORMATION
  Report Type: 
  Country: None (occurrence: None)
  Receive Date: 20060210
  Receipt Date: 20050616
  Transmission Date: 20060701
  Serious: No
  Sender: FDA-Public Use
  Company Number: US-GLAXOSMITHKLINE-A0563002A

PATIENT
  Age: 69 Year
  Sex: Female

DRUGS (6)
  1. PAXIL CR [Suspect]
     Dosage: 12.5MG PER DAY
     Route: 048
     Dates: start: 20041101
  2. PAROXETINE HCL [Suspect]
     Dosage: 40MG PER DAY
     Route: 048
     Dates: start: 20050301
  3. PROTONIX [Concomitant]
     Indication: GASTRIC DISORDER
     Dates: end: 20050615
  4. ALLEGRA [Concomitant]
     Route: 065
  5. ZOLOFT [Concomitant]
     Route: 065
  6. LORAZEPAM [Concomitant]

REACTIONS (12)
  - FATIGUE [None]
  - ILL-DEFINED DISORDER [None]
  - INFLUENZA LIKE ILLNESS [None]
  - NAIL DISORDER [None]
  - PHOTOSENSITIVITY REACTION [None]
  - PRURITUS [None]
  - PURPURA [None]
  - RASH [None]
  - SKIN BURNING SENSATION [None]
  - SKIN ULCER [None]
  - THERAPEUTIC RESPONSE UNEXPECTED [None]
  - TINNITUS [None]
